FAERS Safety Report 5626272-3 (Version None)
Quarter: 2008Q1

REPORT INFORMATION
  Report Type: 
  Country: None (occurrence: None)
  Receive Date: 20080207
  Receipt Date: 20080129
  Transmission Date: 20080703
  Serious: Yes (Other)
  Sender: FDA-Public Use
  Company Number: 2008003084

PATIENT
  Age: 54 Year
  Sex: Female

DRUGS (1)
  1. HYDROGEN PEROXIDE SOLUTION [Suspect]
     Dosage: UNSPECIFIED, ORAL
     Route: 048

REACTIONS (3)
  - ACCIDENTAL EXPOSURE [None]
  - CEREBRAL ARTERY EMBOLISM [None]
  - DRUG TOXICITY [None]
